FAERS Safety Report 9451214 (Version 1)
Quarter: 2013Q3

REPORT INFORMATION
  Report Type: Spontaneous
  Country: GB (occurrence: GB)
  Receive Date: 20130809
  Receipt Date: 20130809
  Transmission Date: 20140515
  Serious: Yes (Other)
  Sender: FDA-Public Use
  Company Number: GB-TEVA-422201ISR

PATIENT
  Age: 75 Year
  Sex: Female
  Weight: 38 kg

DRUGS (3)
  1. LISINOPRIL [Suspect]
     Dates: start: 20130715
  2. LERCANIDIPINE [Suspect]
     Route: 048
     Dates: start: 20130715
  3. AMLODIPINE [Suspect]
     Route: 048
     Dates: start: 20130715

REACTIONS (3)
  - Hyponatraemia [Recovered/Resolved]
  - Oedema peripheral [Recovered/Resolved]
  - Joint swelling [Recovered/Resolved]
